FAERS Safety Report 7779658-5 (Version None)
Quarter: 2011Q3

REPORT INFORMATION
  Report Type: 
  Country: None (occurrence: None)
  Receive Date: 20110927
  Receipt Date: 20090401
  Transmission Date: 20111222
  Serious: Yes (Other)
  Sender: FDA-Public Use
  Company Number: US-BAYER-200827423NA

PATIENT
  Sex: Female
  Weight: 104.31 kg

DRUGS (34)
  1. FLUOXETINE [Concomitant]
     Indication: DEPRESSION
     Dosage: 40MG/ONCE A DAY
  2. PREDNISONE [Concomitant]
     Dosage: 10MG/ONCE A DAY
     Dates: start: 19930101
  3. COLCHICINE [Concomitant]
  4. EPOGEN [Concomitant]
     Dosage: 12,000 MONDAY,WEDNESDAY,FRIDAY
     Route: 058
  5. PROHANCE [Suspect]
     Indication: NUCLEAR MAGNETIC RESONANCE IMAGING
  6. ALLOPURINOL [Concomitant]
     Indication: GOUT
     Dosage: 300MG/ONCE A DAY
  7. METOPROLOL TARTRATE [Concomitant]
     Indication: BLOOD PRESSURE ABNORMAL
     Dosage: 25MG/TWICE A DAY
  8. LIPITOR [Concomitant]
     Dosage: 20MG
  9. OPTIMARK [Suspect]
     Indication: NUCLEAR MAGNETIC RESONANCE IMAGING
  10. GADOLINIUM IN UNSPECIFIED DRUG [Suspect]
     Indication: NUCLEAR MAGNETIC RESONANCE IMAGING
     Dosage: UNK
     Dates: start: 19980731
  11. LYRICA [Concomitant]
     Indication: ANALGESIC THERAPY
     Dosage: 75MG/TWICE A DAY
  12. HYDROCHLOROTHIAZIDE [Concomitant]
     Indication: DIURETIC THERAPY
     Dosage: 25MG/ONCE A DAY
  13. CARDIZEM [Concomitant]
     Dosage: 180MG
  14. TACROLIMUS [Concomitant]
     Indication: PROPHYLAXIS AGAINST TRANSPLANT REJECTION
     Dosage: 1MG/TWICE A DAY
     Dates: start: 20030101
  15. NORVASC [Concomitant]
     Dosage: 5MG/ONCE A DAY
     Dates: end: 20070101
  16. MAGNEVIST [Suspect]
     Indication: NUCLEAR MAGNETIC RESONANCE IMAGING
     Dosage: 20ML
     Route: 042
     Dates: start: 20000229, end: 20000229
  17. VICODIN [Concomitant]
     Indication: ANALGESIC THERAPY
     Dosage: 10MG/500/2-3 TIMES A DAY
     Dates: start: 20030101
  18. TRENTAL [Concomitant]
     Dosage: 200MG/TWICE A DAY
  19. CYCLOSPORINE [Concomitant]
     Indication: PROPHYLAXIS AGAINST TRANSPLANT REJECTION
     Dosage: UNK
     Dates: start: 19930101, end: 20030101
  20. PROGRAF [Concomitant]
     Dosage: 0.5MG IN MORNING AND 1MG IN EVENING
  21. ATIVAN [Concomitant]
     Dosage: 2MG THREE TIMES DAILY
     Route: 048
  22. SIMVASTATIN [Concomitant]
     Indication: BLOOD CHOLESTEROL INCREASED
     Dosage: 40MG/ONCE A DAY
     Dates: start: 20040101
  23. DIGOXIN [Concomitant]
     Indication: CARDIAC FAILURE CONGESTIVE
     Dosage: 0.125MG, MONDAY,WEDNESDAY,FRIDAY
     Dates: start: 20080101
  24. XOPENEX [Concomitant]
     Indication: ASTHMA
     Dosage: .625MG/AS NEEDED
  25. TORSEMIDE [Concomitant]
     Dosage: 10MG
  26. CYMBALTA [Concomitant]
     Dosage: 60MG
  27. FERROUS SULFATE TAB [Concomitant]
  28. DITROPAN [Concomitant]
     Dosage: 5MG TWICE DAILY
     Route: 048
  29. OMNISCAN [Suspect]
     Indication: NUCLEAR MAGNETIC RESONANCE IMAGING
  30. MULTIHANCE [Suspect]
     Indication: NUCLEAR MAGNETIC RESONANCE IMAGING
  31. LASIX [Concomitant]
     Indication: DIURETIC THERAPY
     Dosage: 20MG/ONCE A DAY
  32. ACETYLSALICYLIC ACID SRT [Concomitant]
     Dosage: 81MG/ONCE A DAY
  33. NEURONTIN [Concomitant]
     Dosage: 300MG
  34. LANTUS [Concomitant]

REACTIONS (14)
  - EMOTIONAL DISTRESS [None]
  - NEPHROGENIC SYSTEMIC FIBROSIS [None]
  - INJURY [None]
  - SKIN INDURATION [None]
  - JOINT RANGE OF MOTION DECREASED [None]
  - PAIN [None]
  - PAIN OF SKIN [None]
  - ERYTHEMA [None]
  - PRURITUS [None]
  - GAIT DISTURBANCE [None]
  - OEDEMA PERIPHERAL [None]
  - FIBROSIS [None]
  - ANXIETY [None]
  - INDURATION [None]
